FAERS Safety Report 5106029-2 (Version None)
Quarter: 2006Q3

REPORT INFORMATION
  Report Type: 
  Country: None (occurrence: None)
  Receive Date: 20060915
  Receipt Date: 20060905
  Transmission Date: 20061208
  Serious: Yes (Hospitalization)
  Sender: FDA-Public Use
  Company Number: US-ABBOTT-06P-163-0343101-00

PATIENT
  Sex: Male
  Weight: 101.5 kg

DRUGS (2)
  1. HUMIRA [Suspect]
     Indication: CROHN'S DISEASE
     Route: 058
     Dates: start: 20060801
  2. MESALAZINE [Concomitant]
     Indication: CROHN'S DISEASE

REACTIONS (2)
  - CONFUSIONAL STATE [None]
  - GLOBAL AMNESIA [None]
